FAERS Safety Report 16893929 (Version 2)
Quarter: 2019Q4

REPORT INFORMATION
  Report Type: Spontaneous
  Country: DE (occurrence: DE)
  Receive Date: 20191008
  Receipt Date: 20191217
  Transmission Date: 20200122
  Serious: Yes (Hospitalization)
  Sender: FDA-Public Use
  Company Number: DE-TEVA-2019-DE-1116602

PATIENT
  Age: 2 Year
  Sex: Male
  Weight: 13 kg

DRUGS (1)
  1. AMOXICILLIN-RATIOPHARM 250 MG/5 ML TS [Suspect]
     Active Substance: AMOXICILLIN
     Indication: OTITIS MEDIA
     Route: 042
     Dates: start: 20190929

REACTIONS (4)
  - Vomiting [Recovering/Resolving]
  - Fibrin D dimer increased [Recovering/Resolving]
  - Incorrect route of product administration [Recovering/Resolving]
  - Transaminases increased [Recovering/Resolving]

NARRATIVE: CASE EVENT DATE: 20190930
